FAERS Safety Report 7027021-7 (Version None)
Quarter: 2010Q4

REPORT INFORMATION
  Report Type: 
  Country: None (occurrence: None)
  Receive Date: 20101004
  Receipt Date: 20100923
  Transmission Date: 20110411
  Serious: Yes (Other)
  Sender: FDA-Public Use
  Company Number: US-JNJFOC-20100907588

PATIENT
  Age: 41 Year
  Sex: Female

DRUGS (4)
  1. REMICADE [Suspect]
     Indication: COLITIS ULCERATIVE
     Route: 042
  2. IRON [Concomitant]
  3. MICRONOR [Concomitant]
  4. HYDROCORTISONE CREAM [Concomitant]

REACTIONS (1)
  - SQUAMOUS CELL CARCINOMA [None]
